FAERS Safety Report 17636147 (Version 1)
Quarter: 2020Q2

REPORT INFORMATION
  Report Type: Spontaneous
  Country: JP (occurrence: JP)
  Receive Date: 20200407
  Receipt Date: 20200407
  Transmission Date: 20200713
  Serious: Yes (Other)
  Sender: FDA-Public Use
  Company Number: JP-009507513-2004JPN000099J

PATIENT
  Sex: Male

DRUGS (2)
  1. BELSOMRA [Suspect]
     Active Substance: SUVOREXANT
     Indication: INSOMNIA
     Dosage: UNK
     Route: 048
     Dates: end: 202002
  2. BELSOMRA [Suspect]
     Active Substance: SUVOREXANT
     Dosage: UNK, HS
     Route: 048
     Dates: start: 20200401

REACTIONS (4)
  - Middle insomnia [Unknown]
  - Dementia [Unknown]
  - Condition aggravated [Unknown]
  - Drug ineffective [Unknown]

NARRATIVE: CASE EVENT DATE: 2020
